FAERS Safety Report 9239505 (Version 1)
Quarter: 2013Q2

REPORT INFORMATION
  Report Type: Spontaneous
  Country: US (occurrence: US)
  Receive Date: 20130418
  Receipt Date: 20130418
  Transmission Date: 20140414
  Serious: Yes (Hospitalization)
  Sender: FDA-Public Use
  Company Number: US-BANPHARM-20131150

PATIENT
  Age: 69 Year
  Sex: 0

DRUGS (14)
  1. ERGOCALCIFEROL UNKNOWN PRODUCT [Suspect]
  2. SPIRIVA [Suspect]
  3. CLOPIDOGREL [Suspect]
  4. ENOXAPARIN [Suspect]
  5. OXYCODONE [Suspect]
  6. WARFARIN [Suspect]
  7. HYDROCODONE [Suspect]
  8. LEVOTHYROXINE [Suspect]
  9. ROBAXIN [Suspect]
  10. ALBUTEROL NEBULIZER INHALATION SOLUTION [Suspect]
  11. AZITHROMYCIN [Suspect]
  12. LETIRIZINE [Suspect]
  13. CLONAZEPAM [Suspect]
  14. LACTULOSE [Suspect]

REACTIONS (3)
  - Hypoacusis [Unknown]
  - Malaise [Unknown]
  - Pain [Unknown]
